FAERS Safety Report 6113531-3 (Version None)
Quarter: 2009Q1

REPORT INFORMATION
  Report Type: 
  Country: None (occurrence: None)
  Receive Date: 20090312
  Receipt Date: 20090311
  Transmission Date: 20090719
  Serious: Yes (Hospitalization, Other)
  Sender: FDA-Public Use
  Company Number: US-ASTRAZENECA-2008UW08928

PATIENT
  Age: 542 Month
  Sex: Female
  Weight: 68 kg

DRUGS (9)
  1. SEROQUEL [Suspect]
     Indication: MAJOR DEPRESSION
     Dosage: 100-300MG
     Route: 048
     Dates: start: 20051201, end: 20070801
  2. SEROQUEL [Suspect]
     Indication: SCHIZOPHRENIA, PARANOID TYPE
     Dosage: 100-300MG
     Route: 048
     Dates: start: 20051201, end: 20070801
  3. ABILIFY [Concomitant]
     Dosage: 15-30MG
     Dates: start: 20070101
  4. ZYPREXA [Concomitant]
  5. BENZOTROPINE [Concomitant]
     Dates: start: 20070101
  6. TRAZODONE HCL [Concomitant]
     Dates: start: 20060101, end: 20070101
  7. DOXEPIN HCL [Concomitant]
     Dates: start: 20060101, end: 20070101
  8. HYDROXYZINE [Concomitant]
     Dates: start: 20060101
  9. DEPAKOTE [Concomitant]
     Dates: start: 20060101

REACTIONS (18)
  - ABDOMINAL PAIN LOWER [None]
  - ABDOMINAL PAIN UPPER [None]
  - BACK PAIN [None]
  - BLOOD COUNT ABNORMAL [None]
  - CARDIOVASCULAR DISORDER [None]
  - CHEST PAIN [None]
  - DIABETIC RETINOPATHY [None]
  - GASTRIC BYPASS [None]
  - HEADACHE [None]
  - HEPATITIS C [None]
  - HERNIA [None]
  - HYPERGLYCAEMIA [None]
  - LEUKOPENIA [None]
  - NECK PAIN [None]
  - PAIN IN EXTREMITY [None]
  - PANCREATITIS [None]
  - SLEEP APNOEA SYNDROME [None]
  - WEIGHT INCREASED [None]
